FAERS Safety Report 5370868-3 (Version None)
Quarter: 2007Q2

REPORT INFORMATION
  Report Type: 
  Country: None (occurrence: None)
  Receive Date: 20070618
  Receipt Date: 20070410
  Transmission Date: 20071010
  Serious: Yes (Disabling, Other)
  Sender: FDA-Public Use
  Company Number: PHEH2007US02269

PATIENT
  Age: 67 Year
  Sex: Male

DRUGS (6)
  1. GLEEVEC [Suspect]
     Indication: CHRONIC MYELOID LEUKAEMIA
     Dosage: 400 MG, QD, ORAL; 400 MG, BID, ORAL; 400 MG, QD, ORAL
     Route: 048
     Dates: start: 20041001
  2. ATENOLOL [Concomitant]
  3. VERAPAMIL [Concomitant]
  4. COUMADIN [Concomitant]
  5. ALLOPURINOL (ALLOPURINOL) UNKNOWN [Concomitant]
  6. FOLIC ACID [Concomitant]

REACTIONS (3)
  - PAPILLOEDEMA [None]
  - VISUAL ACUITY REDUCED [None]
  - VISUAL FIELD DEFECT [None]
